FAERS Safety Report 5381082-X (Version None)
Quarter: 2007Q3

REPORT INFORMATION
  Report Type: 
  Country: None (occurrence: None)
  Receive Date: 20070706
  Receipt Date: 20070626
  Transmission Date: 20080115
  Serious: Yes (Hospitalization)
  Sender: FDA-Public Use
  Company Number: BE-PFIZER INC-2007052724

PATIENT
  Sex: Male
  Weight: 72 kg

DRUGS (1)
  1. SU-011,248 [Suspect]
     Indication: METASTATIC RENAL CELL CARCINOMA
     Route: 048
     Dates: start: 20060803, end: 20060816

REACTIONS (4)
  - ANOREXIA [None]
  - DRUG TOXICITY [None]
  - NEUTROPENIC INFECTION [None]
  - VOMITING [None]
